FAERS Safety Report 13079852 (Version 1)
Quarter: 2017Q1

REPORT INFORMATION
  Report Type: Spontaneous
  Country: AU (occurrence: AU)
  Receive Date: 20170103
  Receipt Date: 20170103
  Transmission Date: 20170428
  Serious: Yes (Other)
  Sender: FDA-Public Use
  Company Number: AU-AMGEN-AUSSP2016184328

PATIENT
  Age: 62 Year
  Sex: Female

DRUGS (6)
  1. EZETROL [Concomitant]
     Active Substance: EZETIMIBE
     Indication: BLOOD CHOLESTEROL ABNORMAL
     Dosage: 10 MG, QD
     Route: 048
  2. BETALOC [Concomitant]
     Active Substance: METOPROLOL TARTRATE
     Dosage: 100 MG, UNK
     Route: 048
  3. ALDACTONE [Concomitant]
     Active Substance: SPIRONOLACTONE
     Dosage: 25 MG, UNK
     Route: 048
  4. CARTIA XT [Concomitant]
     Active Substance: DILTIAZEM HYDROCHLORIDE
     Indication: CORONARY ARTERY DISEASE
     Dosage: 100 MG, QD
     Route: 048
  5. REPATHA [Suspect]
     Active Substance: EVOLOCUMAB
     Indication: TYPE IIA HYPERLIPIDAEMIA
     Dosage: 140 MG, Q2WK
     Route: 058
     Dates: start: 20160523, end: 20161228
  6. PLAVIX [Concomitant]
     Active Substance: CLOPIDOGREL BISULFATE
     Indication: CORONARY ARTERY DISEASE
     Route: 048

REACTIONS (2)
  - Orbital oedema [Not Recovered/Not Resolved]
  - Back pain [Not Recovered/Not Resolved]

NARRATIVE: CASE EVENT DATE: 20161116
